FAERS Safety Report 7307489-9 (Version None)
Quarter: 2011Q1

REPORT INFORMATION
  Report Type: 
  Country: None (occurrence: None)
  Receive Date: 20110223
  Receipt Date: 20110209
  Transmission Date: 20110831
  Serious: Yes (Life-Threatening)
  Sender: FDA-Public Use
  Company Number: GB-RANBAXY-2011R1-41866

PATIENT
  Age: 55 Year
  Sex: Male

DRUGS (5)
  1. ISOTRETINOIN [Suspect]
     Indication: PSORIASIS
     Dosage: 30 MG, UNK
     Route: 048
  2. LISINOPRIL [Concomitant]
     Indication: PRODUCT USED FOR UNKNOWN INDICATION
     Dosage: UNK
     Route: 065
  3. FELODIPINE [Concomitant]
     Indication: PRODUCT USED FOR UNKNOWN INDICATION
     Dosage: UNK
     Route: 065
  4. LANSOPRAZOLE [Concomitant]
     Indication: PRODUCT USED FOR UNKNOWN INDICATION
     Dosage: UNK
     Route: 065
  5. ASACOL [Suspect]
     Indication: PSORIASIS
     Dosage: 800 MG, TID
     Route: 048

REACTIONS (2)
  - PULMONARY EMBOLISM [None]
  - PLEURITIC PAIN [None]
